FAERS Safety Report 12902512 (Version 1)
Quarter: 2016Q4

REPORT INFORMATION
  Report Type: Spontaneous
  Country: US (occurrence: US)
  Receive Date: 20161102
  Receipt Date: 20161102
  Transmission Date: 20170207
  Serious: Yes (Hospitalization, Other)
  Sender: FDA-Public Use
  Company Number: US-ACADIA PHARMACEUTICALS INC.-ACA-2016-001092

PATIENT
  Age: 71 Year
  Sex: Male
  Weight: 70.3 kg

DRUGS (3)
  1. NUPLAZID [Suspect]
     Active Substance: PIMAVANSERIN TARTRATE
     Indication: DELUSION
  2. NUPLAZID [Suspect]
     Active Substance: PIMAVANSERIN TARTRATE
     Indication: HALLUCINATION
  3. NUPLAZID [Suspect]
     Active Substance: PIMAVANSERIN TARTRATE
     Indication: PARKINSON^S DISEASE PSYCHOSIS
     Dosage: 34 MG, QD
     Route: 048
     Dates: start: 20160627

REACTIONS (10)
  - Urinary tract infection [Not Recovered/Not Resolved]
  - White blood cell count increased [Unknown]
  - Hypotension [Recovering/Resolving]
  - Unresponsive to stimuli [Unknown]
  - Heart rate decreased [Not Recovered/Not Resolved]
  - Electrocardiogram abnormal [Unknown]
  - Fall [Unknown]
  - Infection [Recovered/Resolved]
  - Hallucination [Recovering/Resolving]
  - Orthostatic hypotension [Unknown]

NARRATIVE: CASE EVENT DATE: 20160718
